FAERS Safety Report 6338467-4 (Version None)
Quarter: 2009Q3

REPORT INFORMATION
  Report Type: 
  Country: None (occurrence: None)
  Receive Date: 20090901
  Receipt Date: 20090828
  Transmission Date: 20100115
  Serious: Yes (Other)
  Sender: FDA-Public Use
  Company Number: SP02484

PATIENT
  Age: 59 Year
  Sex: Female

DRUGS (4)
  1. OSMOPREP [Suspect]
     Indication: COLONOSCOPY
     Dosage: ORAL
     Route: 048
     Dates: start: 20090621, end: 20090621
  2. LYRICA [Suspect]
  3. PREMARIN [Concomitant]
  4. NEXIUM [Concomitant]

REACTIONS (6)
  - BLOOD PRESSURE INCREASED [None]
  - DYSURIA [None]
  - FLUID RETENTION [None]
  - NEPHROLITHIASIS [None]
  - OEDEMA PERIPHERAL [None]
  - WEIGHT INCREASED [None]
